FAERS Safety Report 8841554 (Version 1)
Quarter: 2012Q4

REPORT INFORMATION
  Report Type: 
  Country: US (occurrence: US)
  Receive Date: 20121016
  Receipt Date: 20121016
  Transmission Date: 20130627
  Serious: No
  Sender: FDA-Public Use
  Company Number: US-BIOGENIDEC-2012BI044992

PATIENT
  Sex: Male

DRUGS (5)
  1. TYSABRI [Suspect]
     Indication: MULTIPLE SCLEROSIS
     Route: 042
     Dates: start: 20101102, end: 20111005
  2. COPAXONE [Concomitant]
     Indication: MULTIPLE SCLEROSIS
  3. GILENYA [Concomitant]
     Indication: MULTIPLE SCLEROSIS
  4. ADVAIR [Concomitant]
     Indication: ASTHMA
  5. ALBUTEROL [Concomitant]
     Indication: ASTHMA

REACTIONS (1)
  - Headache [Recovered/Resolved]
